FAERS Safety Report 9935316 (Version 3)
Quarter: 2016Q1

REPORT INFORMATION
  Report Type: Spontaneous
  Country: NO (occurrence: NO)
  Receive Date: 20140228
  Receipt Date: 20160122
  Transmission Date: 20160526
  Serious: Yes (Life-Threatening, Hospitalization)
  Sender: FDA-Public Use
  Company Number: NO-PFIZER INC-2014055162

PATIENT
  Age: 8 Decade
  Sex: Male

DRUGS (11)
  1. PHYSIOTENS [Concomitant]
     Active Substance: MOXONIDINE
     Indication: HYPERTENSION
  2. PRAVACHOL [Concomitant]
     Active Substance: PRAVASTATIN SODIUM
     Indication: PROPHYLAXIS
  3. ETALPHA [Concomitant]
     Active Substance: ALFACALCIDOL
  4. ZANIDIP [Concomitant]
     Active Substance: LERCANIDIPINE HYDROCHLORIDE
  5. COAPROVEL [Concomitant]
     Active Substance: HYDROCHLOROTHIAZIDE\IRBESARTAN
  6. MAGNESIUM [Concomitant]
     Active Substance: MAGNESIUM
  7. ZYLORIC [Concomitant]
     Active Substance: ALLOPURINOL
     Indication: GOUT
  8. MAREVAN [Concomitant]
     Active Substance: WARFARIN SODIUM
     Indication: ATRIAL FIBRILLATION
  9. LASIX [Concomitant]
     Active Substance: FUROSEMIDE
  10. ZYVOXID [Suspect]
     Active Substance: LINEZOLID
     Indication: LOCALISED INFECTION
     Dosage: 600 MG, 2X/DAY
     Route: 048
  11. SELOZOK [Concomitant]
     Active Substance: METOPROLOL SUCCINATE

REACTIONS (5)
  - Product use issue [Recovered/Resolved]
  - Thrombocytopenia [Recovered/Resolved]
  - Hepatocellular injury [Recovered/Resolved]
  - Anaemia [Recovering/Resolving]
  - Lactic acidosis [Recovered/Resolved with Sequelae]
